FAERS Safety Report 14408375 (Version 2)
Quarter: 2018Q1

REPORT INFORMATION
  Report Type: Report from Study
  Country: JP (occurrence: JP)
  Receive Date: 20180118
  Receipt Date: 20180215
  Transmission Date: 20180509
  Serious: Yes (Hospitalization)
  Sender: FDA-Public Use
  Company Number: JP-TAKEDA-2017TJP017606

PATIENT
  Age: 73 Year
  Sex: Female

DRUGS (4)
  1. DEXAMETHASONE. [Concomitant]
     Active Substance: DEXAMETHASONE
     Indication: PLASMA CELL MYELOMA
     Dosage: UNK
     Route: 048
     Dates: start: 20170701
  2. REVLIMID [Concomitant]
     Active Substance: LENALIDOMIDE
     Indication: PLASMA CELL MYELOMA
     Dosage: UNK
     Route: 048
     Dates: start: 20170701
  3. IXAZOMIB [Suspect]
     Active Substance: IXAZOMIB
     Indication: PLASMA CELL MYELOMA
     Dosage: 2.3 MG, 1/WEEK
     Route: 048
     Dates: start: 20170701
  4. IXAZOMIB [Suspect]
     Active Substance: IXAZOMIB
     Dosage: 2.3 MG, 1/WEEK
     Route: 048

REACTIONS (3)
  - Vertigo [Recovering/Resolving]
  - Herpes zoster [Unknown]
  - Vasculitis [Recovering/Resolving]

NARRATIVE: CASE EVENT DATE: 201708
